FAERS Safety Report 4620649-0 (Version None)
Quarter: 2005Q1

REPORT INFORMATION
  Report Type: 
  Country: None (occurrence: None)
  Receive Date: 20050325
  Receipt Date: 20050218
  Transmission Date: 20050727
  Serious: Yes (Death)
  Sender: FDA-Public Use
  Company Number: 2005S1000653

PATIENT
  Age: 38 Year
  Sex: Male

DRUGS (3)
  1. CLOZAPINE [Suspect]
     Indication: SCHIZOPHRENIA
     Dosage: 400 MG; HS; PO
     Route: 048
     Dates: start: 20020101, end: 20050211
  2. PROLIXIN DECANOATE [Suspect]
     Dosage: SEE IMAGE
     Dates: start: 20020923, end: 20050211
  3. MIRTAZAPINE [Concomitant]

REACTIONS (2)
  - INTRACRANIAL ANEURYSM [None]
  - MYOCARDIAL INFARCTION [None]
